FAERS Safety Report 8314570-4 (Version None)
Quarter: 2012Q2

REPORT INFORMATION
  Report Type: 
  Country: None (occurrence: None)
  Receive Date: 20120426
  Receipt Date: 20120423
  Transmission Date: 20120825
  Serious: Yes (Life-Threatening, Hospitalization, Disabling)
  Sender: FDA-Public Use
  Company Number: CO-ROCHE-1062191

PATIENT
  Sex: Male

DRUGS (1)
  1. MABTHERA [Suspect]
     Indication: NON-HODGKIN'S LYMPHOMA
     Dosage: LAST INFUSION DATE :16/MAR/2012
     Route: 042
     Dates: start: 20110901

REACTIONS (1)
  - CEREBROVASCULAR ACCIDENT [None]
